FAERS Safety Report 4955875-4 (Version None)
Quarter: 2006Q1

REPORT INFORMATION
  Report Type: 
  Country: None (occurrence: None)
  Receive Date: 20060327
  Receipt Date: 20060327
  Transmission Date: 20060701
  Serious: Yes (Other)
  Sender: FDA-Public Use
  Company Number: None

PATIENT
  Sex: Male
  Weight: 76.7486 kg

DRUGS (10)
  1. LOSARTAN POTASSIUM AND HYDROCHLOROTHIAZIDE [Suspect]
     Indication: HYPERTENSION
     Dosage: 1 TAB DAILY
     Dates: start: 20051027, end: 20051205
  2. FLINASTERIDE [Concomitant]
  3. LOVASTATIN [Concomitant]
  4. METFORMIN [Concomitant]
  5. ADALAT CC [Concomitant]
  6. POTASSIUM CHLORIDE [Concomitant]
  7. PSYCLLIUM SF POWDER [Concomitant]
  8. SALSALATE [Concomitant]
  9. TERAZOLSIN [Concomitant]
  10. TIMOLOL MALEATE [Concomitant]

REACTIONS (2)
  - COUGH [None]
  - DRUG INTOLERANCE [None]
